FAERS Safety Report 9034311 (Version 1)
Quarter: 2013Q1

REPORT INFORMATION
  Report Type: Spontaneous
  Country: US (occurrence: US)
  Receive Date: 20130128
  Receipt Date: 20130128
  Transmission Date: 20140127
  Serious: Yes (Hospitalization, Other)
  Sender: FDA-Public Use
  Company Number: US-AMGEN-USASP2012065307

PATIENT
  Age: 78 Year
  Sex: Female

DRUGS (2)
  1. ENBREL [Suspect]
     Indication: PRODUCT USED FOR UNKNOWN INDICATION
     Dosage: 50 MG/ML, 2 TIMES/WK
     Route: 058
     Dates: start: 200902
  2. METHOTREXATE [Concomitant]
     Dosage: UNK

REACTIONS (2)
  - Transfusion [Recovering/Resolving]
  - Depression [Recovering/Resolving]
